FAERS Safety Report 8468178 (Version 5)
Quarter: 2013Q1

REPORT INFORMATION
  Report Type: Spontaneous
  Country: JP (occurrence: JP)
  Receive Date: 20120320
  Receipt Date: 20130122
  Transmission Date: 20140127
  Serious: Yes (Hospitalization)
  Sender: FDA-Public Use
  Company Number: JP-GLAXOSMITHKLINE-B0788983A

PATIENT
  Age: 90 Year
  Sex: Female

DRUGS (13)
  1. VALTREX [Suspect]
     Indication: HERPES ZOSTER OTICUS
     Dosage: 1000MG THREE TIMES PER DAY
     Route: 048
     Dates: start: 20120309, end: 20120313
  2. VALTREX [Suspect]
     Indication: HERPES ZOSTER OTICUS
     Dosage: 1000MG PER DAY
     Route: 048
     Dates: start: 20120314, end: 20120316
  3. RENIVACE [Concomitant]
     Dosage: 10MG PER DAY
     Route: 048
  4. AMLODIPINE [Concomitant]
     Dosage: 5MG PER DAY
     Route: 048
  5. BAYASPIRIN [Concomitant]
     Dosage: 100MG PER DAY
     Route: 048
  6. FUROSEMIDE [Concomitant]
     Dosage: 40MG PER DAY
     Route: 048
  7. ALDACTONE A [Concomitant]
     Dosage: 25MG PER DAY
     Route: 048
  8. LIPITOR [Concomitant]
     Dosage: 10MG PER DAY
     Route: 048
  9. PURSENNID [Concomitant]
     Dosage: 24MG PER DAY
     Route: 048
  10. CALONAL [Concomitant]
     Route: 048
  11. VITAMIN E [Concomitant]
     Route: 048
  12. FERROMIA [Concomitant]
     Dosage: 50MG TWICE PER DAY
     Route: 048
  13. DICLOFENAC SODIUM [Concomitant]
     Route: 062

REACTIONS (7)
  - Hallucination [Recovered/Resolved]
  - Overdose [Unknown]
  - Carotid artery occlusion [Unknown]
  - Cerebral artery occlusion [Unknown]
  - Malaise [Unknown]
  - Asthenia [Unknown]
  - Psychiatric symptom [Recovering/Resolving]
